FAERS Safety Report 8890452 (Version 2)
Quarter: 2012Q4

REPORT INFORMATION
  Report Type: 
  Country: KW (occurrence: KW)
  Receive Date: 20121106
  Receipt Date: 20121109
  Transmission Date: 20130627
  Serious: Yes (Life-Threatening, Hospitalization)
  Sender: FDA-Public Use
  Company Number: KW-ABBOTT-12P-091-1003140-00

PATIENT
  Age: 81 Year
  Sex: Male

DRUGS (4)
  1. LEUPROLIDE [Suspect]
     Indication: PROSTATE CANCER
     Route: 030
  2. LEUPROLIDE [Suspect]
  3. UNKNOWN MEDICATION [Concomitant]
     Indication: BUNDLE BRANCH BLOCK LEFT
  4. FLUTAMIDE [Concomitant]
     Indication: ANTIANDROGEN THERAPY
     Route: 048

REACTIONS (6)
  - Myocardial ischaemia [Unknown]
  - Left ventricular dysfunction [Unknown]
  - Dyspnoea [Unknown]
  - Chest pain [Unknown]
  - Oxygen saturation decreased [Unknown]
  - Hyperhidrosis [Unknown]
